FAERS Safety Report 4551000-2 (Version None)
Quarter: 2005Q1

REPORT INFORMATION
  Report Type: 
  Country: None (occurrence: None)
  Receive Date: 20050113
  Receipt Date: 20040123
  Transmission Date: 20050727
  Serious: No
  Sender: FDA-Public Use
  Company Number: US-BRISTOL-MYERS SQUIBB COMPANY-12487096

PATIENT
  Age: 68 Year
  Sex: Male

DRUGS (1)
  1. CARDIOLITE [Suspect]
     Dates: start: 20040119, end: 20040119

REACTIONS (1)
  - COUGH [None]
